FAERS Safety Report 7319796-4 (Version None)
Quarter: 2011Q1

REPORT INFORMATION
  Report Type: 
  Country: None (occurrence: None)
  Receive Date: 20110228
  Receipt Date: 20100928
  Transmission Date: 20110831
  Serious: Yes (Other)
  Sender: FDA-Public Use
  Company Number: A0884282A

PATIENT
  Age: 49 Year
  Sex: Male

DRUGS (6)
  1. LAMICTAL [Suspect]
     Dosage: 100MG THREE TIMES PER DAY
     Route: 048
  2. INDERAL [Concomitant]
  3. LISINOPRIL [Concomitant]
  4. DILTIAZEM [Concomitant]
  5. MAXZIDE [Concomitant]
  6. LITHIUM [Concomitant]

REACTIONS (2)
  - STEVENS-JOHNSON SYNDROME [None]
  - DRUG HYPERSENSITIVITY [None]
